FAERS Safety Report 9296396 (Version 1)
Quarter: 2013Q2

REPORT INFORMATION
  Report Type: Report from Study
  Country: BR (occurrence: BR)
  Receive Date: 20130517
  Receipt Date: 20130517
  Transmission Date: 20140414
  Serious: Yes (Hospitalization, Other)
  Sender: FDA-Public Use
  Company Number: BR-ABBOTT-13P-020-1089024-00

PATIENT
  Age: 31 Year
  Sex: Male
  Weight: 51 kg

DRUGS (3)
  1. HUMIRA [Suspect]
     Indication: CROHN^S DISEASE
     Dosage: DAY 0
     Route: 058
     Dates: start: 2009
  2. HUMIRA [Suspect]
     Dosage: DAY 14
     Route: 058
  3. HUMIRA [Suspect]
     Route: 058

REACTIONS (3)
  - Procedural complication [Unknown]
  - Small intestine operation [Recovering/Resolving]
  - Crohn^s disease [Not Recovered/Not Resolved]
